FAERS Safety Report 4667819-3 (Version None)
Quarter: 2005Q2

REPORT INFORMATION
  Report Type: 
  Country: None (occurrence: None)
  Receive Date: 20050520
  Receipt Date: 20050520
  Transmission Date: 20051028
  Serious: No
  Sender: FDA-Public Use
  Company Number: None

PATIENT
  Sex: Female
  Weight: 74.3899 kg

DRUGS (1)
  1. WARFARIN SODIUM [Suspect]
     Dosage: AT ANY DOSE/ PO
     Route: 048

REACTIONS (2)
  - PHARMACEUTICAL PRODUCT COMPLAINT [None]
  - PROTHROMBIN TIME ABNORMAL [None]
